FAERS Safety Report 17698982 (Version 1)
Quarter: 2020Q2

REPORT INFORMATION
  Report Type: Spontaneous
  Country: US (occurrence: US)
  Receive Date: 20200422
  Receipt Date: 20200422
  Transmission Date: 20200714
  Serious: No
  Sender: FDA-Public Use
  Company Number: None

PATIENT
  Age: 48 Year
  Sex: Female
  Weight: 74.84 kg

DRUGS (2)
  1. ZYPREXA [Suspect]
     Active Substance: OLANZAPINE
     Indication: SCHIZOAFFECTIVE DISORDER
     Dosage: ?          QUANTITY:20 MG MILLIGRAM(S);?
     Route: 048
     Dates: end: 20191205
  2. ZYPREXA [Suspect]
     Active Substance: OLANZAPINE
     Indication: SCHIZOPHRENIA
     Dosage: ?          QUANTITY:20 MG MILLIGRAM(S);?
     Route: 048
     Dates: end: 20191205

REACTIONS (13)
  - Confusional state [None]
  - Headache [None]
  - Memory impairment [None]
  - Weight increased [None]
  - Product physical issue [None]
  - Fatigue [None]
  - Hunger [None]
  - Vision blurred [None]
  - Dyspnoea [None]
  - Constipation [None]
  - Throat tightness [None]
  - Breast enlargement [None]
  - Somnolence [None]
